FAERS Safety Report 6139318-3 (Version None)
Quarter: 2009Q2

REPORT INFORMATION
  Report Type: 
  Country: None (occurrence: None)
  Receive Date: 20090401
  Receipt Date: 20090325
  Transmission Date: 20091009
  Serious: Yes (Hospitalization, Other)
  Sender: FDA-Public Use
  Company Number: US-CELGENEUS-163-50794-09011171

PATIENT
  Sex: Male
  Weight: 110.4 kg

DRUGS (23)
  1. VIDAZA [Suspect]
     Indication: ACUTE MYELOID LEUKAEMIA
     Route: 051
     Dates: start: 20090126, end: 20090201
  2. VIDAZA [Suspect]
     Route: 051
     Dates: start: 20081229, end: 20090104
  3. VIDAZA [Suspect]
     Route: 051
     Dates: start: 20081027, end: 20081031
  4. AUGMENTIN '125' [Concomitant]
     Indication: BRONCHITIS
     Route: 065
     Dates: start: 20090114
  5. OXYCODONE HCL [Concomitant]
     Indication: PAIN
     Route: 048
     Dates: start: 20031128
  6. DIPHENHYDRAMINE [Concomitant]
     Indication: SLEEP DISORDER
     Route: 048
     Dates: start: 20031128
  7. POLYETHYLENE GLYCOL [Concomitant]
     Indication: CONSTIPATION
     Route: 048
     Dates: start: 20031128
  8. CYCLOBENZAPRINE [Concomitant]
     Indication: PAIN
     Route: 048
     Dates: start: 20040413
  9. ZOLPIDEM [Concomitant]
     Indication: SLEEP DISORDER
     Route: 048
     Dates: start: 20090114
  10. AMOXICILLIN AND CLAVULANATE POTASSIUM [Concomitant]
     Indication: INFECTION
     Route: 048
     Dates: start: 20031128
  11. TESTOSTERONE [Concomitant]
     Indication: INFECTION
     Route: 061
     Dates: start: 20070711
  12. VARDENAFIL [Concomitant]
     Indication: ERECTILE DYSFUNCTION
     Route: 048
     Dates: start: 20060404
  13. PSEUDOEPHEDRINE HCL [Concomitant]
     Indication: NASAL CONGESTION
     Route: 048
     Dates: start: 20080527
  14. CICLOPIROX [Concomitant]
     Indication: FUNGAL INFECTION
     Route: 061
     Dates: start: 20081214
  15. PANTOPRAZOLE SODIUM [Concomitant]
     Route: 061
     Dates: start: 20041006
  16. RED BLOOD CELLS [Concomitant]
     Dosage: 2 UNITS
     Route: 051
  17. RED BLOOD CELLS [Concomitant]
     Dosage: 1 UNIT
     Route: 051
  18. MORPHINE [Concomitant]
     Indication: PAIN
     Route: 048
     Dates: start: 20031128
  19. FLUOXETINE [Concomitant]
     Indication: ANXIETY
     Route: 048
     Dates: start: 20031104
  20. FINASTERIDE [Concomitant]
     Indication: PROSTATIC DISORDER
     Route: 048
     Dates: start: 20080721
  21. TRAZODONE HCL [Concomitant]
     Indication: DEPRESSION
     Route: 048
     Dates: start: 20031125
  22. MULTI-VITAMINS [Concomitant]
     Dosage: 1 TAB DAILY
     Route: 048
     Dates: start: 20040329
  23. RANITIDINE [Concomitant]
     Dates: start: 20050321

REACTIONS (1)
  - MOUTH ULCERATION [None]
